FAERS Safety Report 6704422-5 (Version None)
Quarter: 2010Q2

REPORT INFORMATION
  Report Type: 
  Country: None (occurrence: None)
  Receive Date: 20100430
  Receipt Date: 20100419
  Transmission Date: 20101027
  Serious: Yes (Death)
  Sender: FDA-Public Use
  Company Number: JP-SANOFI-AVENTIS-A01200902028

PATIENT
  Age: 66 Year
  Sex: Male
  Weight: 50 kg

DRUGS (16)
  1. ELPLAT [Suspect]
     Indication: RECTAL CANCER
     Route: 041
     Dates: start: 20080908, end: 20080908
  2. ELPLAT [Suspect]
     Route: 041
     Dates: start: 20090126, end: 20090126
  3. CALCIUM LEVOFOLINATE [Suspect]
     Indication: RECTAL CANCER
     Route: 041
     Dates: start: 20080922, end: 20090126
  4. CALCIUM LEVOFOLINATE [Suspect]
     Route: 041
     Dates: start: 20080908, end: 20080909
  5. FLUOROURACIL [Suspect]
     Indication: RECTAL CANCER
     Route: 040
     Dates: start: 20080908, end: 20090909
  6. FLUOROURACIL [Suspect]
     Route: 041
     Dates: start: 20080908, end: 20090909
  7. FLUOROURACIL [Suspect]
     Route: 040
     Dates: start: 20080922, end: 20090126
  8. FLUOROURACIL [Suspect]
     Route: 041
     Dates: start: 20080922, end: 20090126
  9. KYTRIL [Concomitant]
     Route: 042
     Dates: start: 20080908, end: 20090126
  10. ORGADRONE [Concomitant]
     Indication: PREMEDICATION
     Route: 042
     Dates: start: 20080908, end: 20090126
  11. POLARAMINE [Concomitant]
     Indication: PREMEDICATION
     Route: 041
     Dates: start: 20080922, end: 20090126
  12. VOGLIBOSE [Concomitant]
     Indication: DIABETES MELLITUS
     Route: 048
     Dates: start: 20080908, end: 20090202
  13. PIOGLITAZONE [Concomitant]
     Indication: DIABETES MELLITUS
     Route: 048
     Dates: start: 20080908, end: 20090202
  14. AMARYL [Concomitant]
     Indication: DIABETES MELLITUS
     Dosage: 0.5-1.0MG
     Route: 048
     Dates: start: 20080908, end: 20090202
  15. AZACTAM [Concomitant]
     Route: 065
     Dates: start: 20090202, end: 20090207
  16. DALACIN [Concomitant]
     Route: 065
     Dates: start: 20090202, end: 20090207

REACTIONS (1)
  - NECROTISING FASCIITIS [None]
